FAERS Safety Report 19662122 (Version 1)
Quarter: 2021Q3

REPORT INFORMATION
  Report Type: Report from Study
  Country: US (occurrence: US)
  Receive Date: 20210805
  Receipt Date: 20210805
  Transmission Date: 20211014
  Serious: Yes (Hospitalization)
  Sender: FDA-Public Use
  Company Number: US-SA-2021SA170477

PATIENT
  Age: 63 Year
  Sex: Female

DRUGS (2)
  1. DUPILUMAB [Suspect]
     Active Substance: DUPILUMAB
     Indication: ASTHMA
     Dosage: 600 MG, 1X
     Route: 058
     Dates: start: 20210520, end: 20210520
  2. DUPILUMAB [Suspect]
     Active Substance: DUPILUMAB
     Dosage: UNK

REACTIONS (7)
  - Tooth disorder [Recovering/Resolving]
  - Pain [Unknown]
  - Injection site swelling [Unknown]
  - Pain [Unknown]
  - Injection site pain [Unknown]
  - Product use issue [Unknown]
  - Erythema [Unknown]

NARRATIVE: CASE EVENT DATE: 20210520
